FAERS Safety Report 8285422-3 (Version None)
Quarter: 2012Q2

REPORT INFORMATION
  Report Type: 
  Country: None (occurrence: None)
  Receive Date: 20120413
  Receipt Date: 20111110
  Transmission Date: 20120825
  Serious: No
  Sender: FDA-Public Use
  Company Number: US-ASTRAZENECA-2010SE14402

PATIENT
  Age: 46 Year
  Sex: Female

DRUGS (20)
  1. OXYCODONE HCL [Concomitant]
  2. HYOSCYANINE [Concomitant]
  3. FLUCONAZOLE [Concomitant]
  4. METHYLPREDNISOLONE [Concomitant]
  5. CARISOPRODOL [Concomitant]
  6. AMOXICILLIN [Concomitant]
  7. ALPRAZOLAM [Concomitant]
  8. IBUPROPHEN [Concomitant]
  9. CYCLOBENAZPRINE [Concomitant]
  10. PRAVASTATIN [Concomitant]
  11. NEXIUM [Suspect]
     Indication: GASTROOESOPHAGEAL REFLUX DISEASE
     Route: 048
  12. AZITHROMYCIN [Concomitant]
  13. SULFAMETHOXAZOLE/TRIMETHO [Concomitant]
  14. METOPROLOL TARTRATE [Suspect]
     Route: 048
  15. CEPHALEXIN [Concomitant]
  16. LISINOPRIL [Suspect]
     Route: 048
  17. HYOSCYAMINE [Concomitant]
  18. PHENOBARBITAL TAB [Concomitant]
  19. DICYCLOMINE [Concomitant]
  20. PHENAZOPYRIDINE HCL TAB [Concomitant]

REACTIONS (4)
  - GASTROOESOPHAGEAL REFLUX DISEASE [None]
  - NASOPHARYNGITIS [None]
  - MALAISE [None]
  - DRUG INEFFECTIVE [None]
